FAERS Safety Report 25024348 (Version 1)
Quarter: 2025Q1

REPORT INFORMATION
  Report Type: Report from Study
  Country: US (occurrence: US)
  Receive Date: 20250228
  Receipt Date: 20250228
  Transmission Date: 20250409
  Serious: Yes (Other)
  Sender: ALEXION PHARMACEUTICALS
  Company Number: US-ASTRAZENECA-202502USA020266US

PATIENT
  Age: 30 Year

DRUGS (1)
  1. STRENSIQ [Suspect]
     Active Substance: ASFOTASE ALFA
     Indication: Phosphorus metabolism disorder
     Dosage: 2 MILLIGRAM/KILOGRAM, TIW
     Route: 065

REACTIONS (21)
  - Muscular weakness [Not Recovered/Not Resolved]
  - Arthralgia [Unknown]
  - Back pain [Unknown]
  - Foot fracture [Unknown]
  - Fatigue [Unknown]
  - Weight increased [Unknown]
  - Myalgia [Unknown]
  - Deafness [Unknown]
  - Abdominal distension [Unknown]
  - Abdominal pain [Unknown]
  - Diarrhoea [Unknown]
  - Malaise [Unknown]
  - Increased tendency to bruise [Unknown]
  - Haemorrhagic diathesis [Unknown]
  - Disturbance in attention [Unknown]
  - Headache [Unknown]
  - Nervousness [Unknown]
  - Depression [Unknown]
  - Pain [Unknown]
  - Anxiety [Unknown]
  - Drug intolerance [Unknown]
